FAERS Safety Report 7413240-4 (Version None)
Quarter: 2011Q2

REPORT INFORMATION
  Report Type: 
  Country: None (occurrence: None)
  Receive Date: 20110405
  Receipt Date: 20110315
  Transmission Date: 20111010
  Serious: Yes (Other)
  Sender: FDA-Public Use
  Company Number: JPI-P-014248

PATIENT
  Age: 64 Year
  Sex: Female

DRUGS (4)
  1. XYREM [Suspect]
     Indication: INSOMNIA
     Dosage: 7.5 GM (3.75 GM, 2 IN 1 D), ORAL, ORAL, 8 GM (4 GM, 2 IN 1 D), ORAL,
     Route: 048
     Dates: start: 20090217
  2. XYREM [Suspect]
     Indication: SLEEP APNOEA SYNDROME
     Dosage: 7.5 GM (3.75 GM, 2 IN 1 D), ORAL, ORAL, 8 GM (4 GM, 2 IN 1 D), ORAL,
     Route: 048
     Dates: start: 20090217
  3. XYREM [Suspect]
     Indication: INSOMNIA
     Dosage: 7.5 GM (3.75 GM, 2 IN 1 D), ORAL, ORAL, 8 GM (4 GM, 2 IN 1 D), ORAL,
     Route: 048
     Dates: start: 20080925
  4. XYREM [Suspect]
     Indication: SLEEP APNOEA SYNDROME
     Dosage: 7.5 GM (3.75 GM, 2 IN 1 D), ORAL, ORAL, 8 GM (4 GM, 2 IN 1 D), ORAL,
     Route: 048
     Dates: start: 20080925

REACTIONS (13)
  - EMOTIONAL DISORDER [None]
  - LIP INJURY [None]
  - DYSSTASIA [None]
  - APHASIA [None]
  - AGGRESSION [None]
  - PAIN [None]
  - HEADACHE [None]
  - ABNORMAL SLEEP-RELATED EVENT [None]
  - DISORIENTATION [None]
  - FALL [None]
  - CONTUSION [None]
  - MEMORY IMPAIRMENT [None]
  - DYSPNOEA [None]
